FAERS Safety Report 25617467 (Version 1)
Quarter: 2025Q3

REPORT INFORMATION
  Report Type: Spontaneous
  Country: EU (occurrence: EU)
  Receive Date: 20250729
  Receipt Date: 20250729
  Transmission Date: 20251021
  Serious: Yes (Hospitalization, Other)
  Sender: MYLAN
  Company Number: None

PATIENT
  Age: 35 Year
  Sex: Male

DRUGS (4)
  1. PREGABALIN [Suspect]
     Active Substance: PREGABALIN
     Indication: Product used for unknown indication
     Dosage: 900 MILLIGRAM, QD, 900MG/D
     Dates: start: 2019
  2. PREGABALIN [Suspect]
     Active Substance: PREGABALIN
     Dosage: 900 MILLIGRAM, QD, 900MG/D
     Route: 048
     Dates: start: 2019
  3. PREGABALIN [Suspect]
     Active Substance: PREGABALIN
     Dosage: 900 MILLIGRAM, QD, 900MG/D
     Route: 048
     Dates: start: 2019
  4. PREGABALIN [Suspect]
     Active Substance: PREGABALIN
     Dosage: 900 MILLIGRAM, QD, 900MG/D
     Dates: start: 2019

REACTIONS (3)
  - Pancreatitis acute [Recovered/Resolved]
  - Drug dependence [Recovering/Resolving]
  - Drug withdrawal maintenance therapy [Recovering/Resolving]

NARRATIVE: CASE EVENT DATE: 20190101
